FAERS Safety Report 15473071 (Version 1)
Quarter: 2018Q4

REPORT INFORMATION
  Report Type: Spontaneous
  Country: US (occurrence: US)
  Receive Date: 20181008
  Receipt Date: 20181008
  Transmission Date: 20190205
  Serious: No
  Sender: FDA-Public Use
  Company Number: US-BAYER-2018-185965

PATIENT
  Age: 8 Year
  Sex: Female
  Weight: 44.44 kg

DRUGS (2)
  1. CLARITIN [Suspect]
     Active Substance: LORATADINE
     Indication: HYPERSENSITIVITY
     Dosage: 1 1/2 TEASPOONS
     Route: 048
     Dates: start: 20181002, end: 20181003
  2. CLARITIN [Suspect]
     Active Substance: LORATADINE
     Indication: NASOPHARYNGITIS

REACTIONS (3)
  - Poor quality product administered [None]
  - Underdose [Unknown]
  - Product taste abnormal [None]

NARRATIVE: CASE EVENT DATE: 20181002
